FAERS Safety Report 8114993 (Version 4)
Quarter: 2014Q2

REPORT INFORMATION
  Report Type: Spontaneous
  Country: US (occurrence: US)
  Receive Date: 20110831
  Receipt Date: 20140430
  Transmission Date: 20141212
  Serious: Yes (Hospitalization)
  Sender: FDA-Public Use
  Company Number: US-BAYER-2011-078945

PATIENT
  Age: 24 Year
  Sex: Female
  Weight: 97 kg

DRUGS (4)
  1. YAZ [Suspect]
     Indication: CONTRACEPTION
     Dosage: UNK
     Dates: start: 200708, end: 200808
  2. ORTHO-TRI-CYCLEN 21 [Concomitant]
     Indication: CONTRACEPTION
     Dosage: UNK
     Dates: start: 201102
  3. ORTHO-TRI-CYCLEN 21 [Concomitant]
     Indication: CONTRACEPTION
     Dosage: UNK
     Dates: start: 2005, end: 2008
  4. ORTHO-TRI-CYCLEN 21 [Concomitant]
     Indication: CONTRACEPTION
     Dosage: UNK
     Dates: start: 2002, end: 2003

REACTIONS (2)
  - Gallbladder disorder [None]
  - Cholecystitis chronic [None]
